FAERS Safety Report 11354562 (Version 1)
Quarter: 2015Q3

REPORT INFORMATION
  Report Type: Spontaneous
  Country: US (occurrence: US)
  Receive Date: 20150807
  Receipt Date: 20150807
  Transmission Date: 20151125
  Serious: No
  Sender: FDA-Public Use
  Company Number: US-JNJFOC-20150117169

PATIENT
  Age: 73 Year
  Sex: Female
  Weight: 49.9 kg

DRUGS (1)
  1. MENS ROGAINE [Suspect]
     Active Substance: MINOXIDIL
     Indication: HAIR GROWTH ABNORMAL
     Dosage: USE OF THE APPLICATOR
     Route: 061

REACTIONS (1)
  - Product use issue [Unknown]
